FAERS Safety Report 7832031-3 (Version None)
Quarter: 2011Q4

REPORT INFORMATION
  Report Type: 
  Country: None (occurrence: None)
  Receive Date: 20111021
  Receipt Date: 20111018
  Transmission Date: 20120403
  Serious: Yes (Death)
  Sender: FDA-Public Use
  Company Number: AU-ASTRAZENECA-2011SE62431

PATIENT
  Sex: Male

DRUGS (1)
  1. ZOLADEX [Suspect]
     Route: 058
     Dates: start: 20110509, end: 20111001

REACTIONS (1)
  - NEOPLASM MALIGNANT [None]
